FAERS Safety Report 13449597 (Version 1)
Quarter: 2017Q2

REPORT INFORMATION
  Report Type: Spontaneous
  Country: FR (occurrence: FR)
  Receive Date: 20170417
  Receipt Date: 20170417
  Transmission Date: 20170830
  Serious: Yes (Other)
  Sender: FDA-Public Use
  Company Number: FR-PFIZER INC-2017160063

PATIENT
  Age: 41 Year
  Sex: Female

DRUGS (2)
  1. NOVATREX NOS [Suspect]
     Active Substance: AZITHROMYCIN OR METHOTREXATE SODIUM
     Indication: MIXED CONNECTIVE TISSUE DISEASE
     Dosage: 20 MG, WEEKLY
     Route: 048
     Dates: start: 201607, end: 201701
  2. CORTANCYL [Concomitant]
     Active Substance: PREDNISONE
     Dosage: UNK

REACTIONS (6)
  - Malaise [Recovered/Resolved]
  - Chills [Recovered/Resolved]
  - Headache [Unknown]
  - Condition aggravated [Recovered/Resolved]
  - Raynaud^s phenomenon [Recovered/Resolved]
  - Product use in unapproved indication [Unknown]

NARRATIVE: CASE EVENT DATE: 201607
